FAERS Safety Report 25834632 (Version 2)
Quarter: 2025Q3

REPORT INFORMATION
  Report Type: Other
  Country: US (occurrence: US)
  Receive Date: 20250923
  Receipt Date: 20250923
  Transmission Date: 20251020
  Serious: No
  Sender: SIGMA TAU
  Company Number: US-LEADIANT GMBH-2024LBI000293

PATIENT
  Sex: Female
  Weight: 71.202 kg

DRUGS (3)
  1. MATULANE [Suspect]
     Active Substance: PROCARBAZINE HYDROCHLORIDE
     Indication: Brain neoplasm malignant
     Route: 048
     Dates: start: 20240104
  2. LOMUSTINE [Concomitant]
     Active Substance: LOMUSTINE
     Indication: Brain neoplasm malignant
     Route: 048
  3. VINCRISTINE SULFATE [Concomitant]
     Active Substance: VINCRISTINE SULFATE
     Indication: Brain neoplasm malignant
     Route: 042

REACTIONS (3)
  - Thrombocytopenia [Not Recovered/Not Resolved]
  - Anaemia [Not Recovered/Not Resolved]
  - Neutropenia [Not Recovered/Not Resolved]
